FAERS Safety Report 16960910 (Version 1)
Quarter: 2019Q4

REPORT INFORMATION
  Report Type: Spontaneous
  Country: US (occurrence: US)
  Receive Date: 20191024
  Receipt Date: 20191024
  Transmission Date: 20200122
  Serious: Yes (Disabling, Other)
  Sender: FDA-Public Use
  Company Number: None

PATIENT
  Age: 32 Year
  Sex: Female
  Weight: 60.78 kg

DRUGS (5)
  1. PRENATAL GUMMIES (WITHOUT IRON) [Concomitant]
  2. VITAMIN D 5000 IU [Concomitant]
  3. LILETTA [Suspect]
     Active Substance: LEVONORGESTREL
     Indication: CONTRACEPTION
     Dosage: QUANTITY: 1?INTRAUTERINE
     Dates: start: 20190718, end: 20190905
  4. SYNTRHOID 100 MCG [Concomitant]
  5. FISH OIL [Concomitant]
     Active Substance: FISH OIL

REACTIONS (4)
  - Anxiety [None]
  - Alopecia [None]
  - Drug interaction [None]
  - Hypothyroidism [None]

NARRATIVE: CASE EVENT DATE: 20190903
